FAERS Safety Report 10341546 (Version 1)
Quarter: 2014Q3

REPORT INFORMATION
  Report Type: Spontaneous
  Country: US (occurrence: None)
  Receive Date: 20140723
  Receipt Date: 20140723
  Transmission Date: 20150326
  Serious: No
  Sender: FDA-Public Use
  Company Number: US-006185

PATIENT
  Age: 25 Year
  Sex: Female

DRUGS (3)
  1. ACTHREL [Suspect]
     Active Substance: CORTICORELIN OVINE TRIFLUTATE
     Indication: ALCOHOLISM
     Dosage: ?2 CC SALINE IV XL INTRAVENOUS (NOT OTHERWISE SPECIFIED))
     Route: 042
     Dates: start: 20110830
  2. DEXAMETHASONE () [Concomitant]
  3. PLACEBO () [Concomitant]

REACTIONS (3)
  - Infusion site extravasation [None]
  - Drug administration error [None]
  - Pain [None]

NARRATIVE: CASE EVENT DATE: 20110830
